FAERS Safety Report 5493442-7 (Version None)
Quarter: 2007Q4

REPORT INFORMATION
  Report Type: 
  Country: None (occurrence: None)
  Receive Date: 20071022
  Receipt Date: 20071022
  Transmission Date: 20080405
  Serious: Yes (Life-Threatening, Hospitalization, Other)
  Sender: FDA-Public Use
  Company Number: None

PATIENT
  Age: 43 Year
  Sex: Female
  Weight: 63.5036 kg

DRUGS (2)
  1. PEG-INTRON [Suspect]
     Indication: HEPATITIS C
     Dosage: 1 SHOT PER WEEK
     Dates: start: 20020227, end: 20020619
  2. REBETOL [Suspect]
     Dosage: 4 PILLS PER DAY

REACTIONS (3)
  - CONDITION AGGRAVATED [None]
  - MALAISE [None]
  - SURGERY [None]
